FAERS Safety Report 21760517 (Version 2)
Quarter: 2022Q4

REPORT INFORMATION
  Report Type: Spontaneous
  Country: CN (occurrence: CN)
  Receive Date: 20221221
  Receipt Date: 20221223
  Transmission Date: 20230113
  Serious: No
  Sender: FDA-Public Use
  Company Number: CN-009507513-2212CHN003887

PATIENT
  Age: 72 Year
  Sex: Male
  Weight: 65 kg

DRUGS (1)
  1. CILASTATIN SODIUM\IMIPENEM [Suspect]
     Active Substance: CILASTATIN SODIUM\IMIPENEM
     Indication: Anti-infective therapy
     Dosage: 0.5 GRAM, THREE TIMES A DAY
     Route: 041
     Dates: start: 20221115

REACTIONS (4)
  - Chills [Recovering/Resolving]
  - Heart rate increased [Unknown]
  - Blood pressure abnormal [Unknown]
  - Hyperventilation [Unknown]

NARRATIVE: CASE EVENT DATE: 20221116
